FAERS Safety Report 4521032-9 (Version None)
Quarter: 2004Q4

REPORT INFORMATION
  Report Type: 
  Country: None (occurrence: None)
  Receive Date: 20041208
  Receipt Date: 20041118
  Transmission Date: 20050328
  Serious: Yes (Death, Life-Threatening)
  Sender: FDA-Public Use
  Company Number: 200421524GDDC

PATIENT
  Age: 59 Year
  Sex: Male
  Weight: 91 kg

DRUGS (8)
  1. ENOXAPARIN SODIUM [Suspect]
     Indication: DEEP VEIN THROMBOSIS
     Route: 058
     Dates: start: 20040614, end: 20040629
  2. CAPECITABINE [Concomitant]
     Route: 048
     Dates: start: 20040601, end: 20040630
  3. BETAHISTINE [Concomitant]
     Route: 048
     Dates: start: 20040601, end: 20040630
  4. ATENOLOL [Concomitant]
     Route: 048
     Dates: start: 20040601, end: 20040630
  5. METOCLOPRAMIDE [Concomitant]
     Route: 048
     Dates: start: 20040601, end: 20040630
  6. SPIRONOLACTONE [Concomitant]
     Route: 048
     Dates: start: 20040601, end: 20040630
  7. DEXAMETHASONE [Concomitant]
     Route: 048
     Dates: start: 20040601, end: 20040630
  8. FRUSEMIDE [Concomitant]
     Route: 048
     Dates: start: 20040601, end: 20040630

REACTIONS (2)
  - HEPARIN-INDUCED THROMBOCYTOPENIA [None]
  - INFECTION [None]
